FAERS Safety Report 25135391 (Version 2)
Quarter: 2025Q2

REPORT INFORMATION
  Report Type: Report from Study
  Country: CA (occurrence: CA)
  Receive Date: 20250328
  Receipt Date: 20250403
  Transmission Date: 20250717
  Serious: Yes (Other)
  Sender: TAKEDA
  Company Number: CA-TAKEDA-2025TUS031940

PATIENT
  Age: 60 Year
  Sex: Female

DRUGS (13)
  1. VEDOLIZUMAB [Suspect]
     Active Substance: VEDOLIZUMAB
     Indication: Colitis ulcerative
  2. ENTOCORT [Concomitant]
     Active Substance: BUDESONIDE
  3. Salofalk [Concomitant]
  4. Salofalk [Concomitant]
  5. CALCIUM [Concomitant]
     Active Substance: CALCIUM
  6. LETROZOLE [Concomitant]
     Active Substance: LETROZOLE
  7. FELODIPINE [Concomitant]
     Active Substance: FELODIPINE
  8. VITAMIN D [Concomitant]
     Active Substance: VITAMIN D NOS
  9. VENLAFAXINE [Concomitant]
     Active Substance: VENLAFAXINE HYDROCHLORIDE
  10. GLICLAZIDE [Concomitant]
     Active Substance: GLICLAZIDE
  11. ROSUVASTATIN [Concomitant]
     Active Substance: ROSUVASTATIN
  12. VENTOLIN [Concomitant]
     Active Substance: ALBUTEROL SULFATE
     Dosage: UNK UNK, BID
  13. OMEGA 3 [Concomitant]
     Active Substance: CAPSAICIN

REACTIONS (1)
  - Pneumonia [Not Recovered/Not Resolved]

NARRATIVE: CASE EVENT DATE: 20250325
